FAERS Safety Report 7009620-1 (Version None)
Quarter: 2010Q3

REPORT INFORMATION
  Report Type: 
  Country: None (occurrence: None)
  Receive Date: 20100923
  Receipt Date: 20100913
  Transmission Date: 20110219
  Serious: Yes (Other)
  Sender: FDA-Public Use
  Company Number: PHFR2010GB03771

PATIENT
  Sex: Female

DRUGS (2)
  1. DIOVAN [Suspect]
     Dosage: UNK
     Route: 065
     Dates: start: 20060101
  2. AMLODIPINE [Suspect]
     Dosage: UNK

REACTIONS (1)
  - BLADDER OPERATION [None]
